FAERS Safety Report 5673306-6 (Version None)
Quarter: 2008Q1

REPORT INFORMATION
  Report Type: 
  Country: None (occurrence: None)
  Receive Date: 20080319
  Receipt Date: 20080307
  Transmission Date: 20080703
  Serious: Yes (Hospitalization, Other)
  Sender: FDA-Public Use
  Company Number: US-ELI_LILLY_AND_COMPANY-US200802002242

PATIENT
  Age: 81 Year
  Sex: Female
  Weight: 70.295 kg

DRUGS (5)
  1. FORTEO [Suspect]
     Indication: OSTEOPOROSIS
     Dosage: 20 UG, DAILY (1/D)
  2. TOPROL-XL [Concomitant]
     Dosage: 75 MG, DAILY (1/D)
  3. CELEBREX [Concomitant]
     Dosage: 200 MG, DAILY (1/D)
  4. MAXZIDE [Concomitant]
     Dosage: 25 UNK, DAILY (1/D)
     Route: 048
  5. LOMOTIL [Concomitant]
     Indication: DIARRHOEA
     Dosage: UNK, AS NEEDED

REACTIONS (7)
  - ARTHRALGIA [None]
  - FATIGUE [None]
  - LIMB DISCOMFORT [None]
  - MYALGIA [None]
  - SOMNOLENCE [None]
  - SPINAL COMPRESSION FRACTURE [None]
  - SPINAL FRACTURE [None]
